FAERS Safety Report 20524976 (Version 1)
Quarter: 2022Q1

REPORT INFORMATION
  Report Type: Spontaneous
  Country: US (occurrence: None)
  Receive Date: 20220225
  Receipt Date: 20220225
  Transmission Date: 20220423
  Serious: Yes (Other)
  Sender: FDA-Public Use
  Company Number: None

PATIENT
  Age: 48 Year
  Sex: Male

DRUGS (1)
  1. DIMETHYL FUMARATE [Suspect]
     Active Substance: DIMETHYL FUMARATE
     Dosage: 240MG BID ORAL?
     Route: 048
     Dates: start: 202202

REACTIONS (8)
  - Fatigue [None]
  - Amnesia [None]
  - Diarrhoea [None]
  - Pollakiuria [None]
  - Fall [None]
  - Rib fracture [None]
  - Impaired work ability [None]
  - Flushing [None]

NARRATIVE: CASE EVENT DATE: 20220225
